FAERS Safety Report 6396128-X (Version None)
Quarter: 2009Q4

REPORT INFORMATION
  Report Type: 
  Country: None (occurrence: None)
  Receive Date: 20091009
  Receipt Date: 20091005
  Transmission Date: 20100525
  Serious: Yes (Other)
  Sender: FDA-Public Use
  Company Number: GB-MERCK-0910GBR00017

PATIENT
  Sex: Female

DRUGS (1)
  1. INVANZ [Suspect]
     Indication: PERITONEAL ABSCESS
     Route: 051
     Dates: end: 20090930

REACTIONS (5)
  - CEREBRAL HAEMORRHAGE [None]
  - CONTUSION [None]
  - MUSCLE TWITCHING [None]
  - PETECHIAE [None]
  - THROMBOCYTOPENIA [None]
